FAERS Safety Report 12993812 (Version 3)
Quarter: 2017Q2

REPORT INFORMATION
  Report Type: Spontaneous
  Country: US (occurrence: US)
  Receive Date: 20161202
  Receipt Date: 20170607
  Transmission Date: 20170830
  Serious: No
  Sender: FDA-Public Use
  Company Number: US-JNJFOC-20161126430

PATIENT
  Age: 37 Year
  Sex: Male
  Weight: 72.58 kg

DRUGS (5)
  1. RISPERDAL [Suspect]
     Active Substance: RISPERIDONE
     Indication: SCHIZOPHRENIA
     Route: 048
     Dates: end: 201704
  2. RISPERDAL [Suspect]
     Active Substance: RISPERIDONE
     Indication: SCHIZOPHRENIA
     Route: 048
     Dates: start: 201608
  3. DEPAKOTE [Concomitant]
     Active Substance: DIVALPROEX SODIUM
     Indication: SCHIZOPHRENIA
     Route: 065
     Dates: start: 201608
  4. RISPERDAL [Suspect]
     Active Substance: RISPERIDONE
     Indication: SCHIZOPHRENIA
     Dosage: DOSE INCREASED
     Route: 048
  5. COGENTIN [Concomitant]
     Active Substance: BENZTROPINE MESYLATE
     Route: 065
     Dates: start: 201608

REACTIONS (6)
  - Gynaecomastia [Not Recovered/Not Resolved]
  - Skin disorder [Not Recovered/Not Resolved]
  - Incorrect dose administered [Unknown]
  - Drug dose omission [Unknown]
  - Adverse event [Unknown]
  - Therapeutic response increased [Unknown]

NARRATIVE: CASE EVENT DATE: 201612
